FAERS Safety Report 8820746 (Version 3)
Quarter: 2012Q4

REPORT INFORMATION
  Report Type: 
  Country: JP (occurrence: JP)
  Receive Date: 20121002
  Receipt Date: 20121018
  Transmission Date: 20130627
  Serious: Yes (Other)
  Sender: FDA-Public Use
  Company Number: JP-PFIZER INC-2012238356

PATIENT
  Age: 4 Year
  Sex: Male

DRUGS (1)
  1. GENOTROPIN GOQUICK [Suspect]
     Indication: BODY HEIGHT BELOW NORMAL
     Dosage: 0.45 mg, 1x/day
     Route: 058
     Dates: start: 201208

REACTIONS (2)
  - Pyrexia [Recovered/Resolved]
  - Febrile convulsion [Recovered/Resolved]
